FAERS Safety Report 5842825-1 (Version None)
Quarter: 2008Q3

REPORT INFORMATION
  Report Type: 
  Country: None (occurrence: None)
  Receive Date: 20080811
  Receipt Date: 20080801
  Transmission Date: 20090109
  Serious: Yes (Hospitalization)
  Sender: FDA-Public Use
  Company Number: A-US2008-21456

PATIENT
  Age: 53 Year
  Sex: Female

DRUGS (25)
  1. TRACLEER [Suspect]
     Indication: PULMONARY HYPERTENSION
     Dosage: 125 MG, BID, ORAL
     Route: 048
  2. SILDENAFIL CITRATE [Concomitant]
  3. ADVAIR DISKUS 100/50 [Concomitant]
  4. ALBUTEROL (SALBUTAMOL SULFATE) [Concomitant]
  5. LACTULOSE [Concomitant]
  6. OCEAN (SODIUM CHLORIDE, BENZYL ALCOHOL) [Concomitant]
  7. PLAVIX [Concomitant]
  8. INSULIN, REGULAR (INSULIN) [Concomitant]
  9. OXYCODONE HCL [Concomitant]
  10. FLONASE [Concomitant]
  11. PAROXETINE HCL [Concomitant]
  12. ZOCOR [Concomitant]
  13. DIGOXIN [Concomitant]
  14. LEVOXYL [Concomitant]
  15. SINGULAIR [Concomitant]
  16. TOPROL-XL [Concomitant]
  17. OXYCONTIN [Concomitant]
  18. COLACE (DOCUSATE SODIUM) [Concomitant]
  19. ALLOPURINOL [Concomitant]
  20. ASPIRIN [Concomitant]
  21. IRON (IRON) [Concomitant]
  22. BUMEX [Concomitant]
  23. NYSTATIN [Concomitant]
  24. LANTUS [Concomitant]
  25. NIFEDIPINE [Concomitant]

REACTIONS (15)
  - ASTHENIA [None]
  - CONDITION AGGRAVATED [None]
  - DEHYDRATION [None]
  - DIABETES MELLITUS INADEQUATE CONTROL [None]
  - DYSPNOEA [None]
  - EJECTION FRACTION DECREASED [None]
  - FATIGUE [None]
  - HYPOTENSION [None]
  - IRON DEFICIENCY [None]
  - LEFT VENTRICULAR HYPERTROPHY [None]
  - MUSCLE SPASMS [None]
  - PAIN IN EXTREMITY [None]
  - PULMONARY HYPERTENSION [None]
  - RENAL FAILURE ACUTE [None]
  - RESPIRATORY FAILURE [None]
